FAERS Safety Report 10900623 (Version 1)
Quarter: 2015Q1

REPORT INFORMATION
  Report Type: Spontaneous
  Country: GB (occurrence: None)
  Receive Date: 20150303
  Receipt Date: 20150303
  Transmission Date: 20150721
  Serious: Yes (Other)
  Sender: FDA-Public Use
  Company Number: UCM201502-000142

PATIENT

DRUGS (1)
  1. BISOPROLOL FUMARATE (BISOPROLOL FUMARATE) [Suspect]
     Active Substance: BISOPROLOL FUMARATE

REACTIONS (2)
  - Poisoning deliberate [None]
  - Cardiac arrest [None]
